FAERS Safety Report 14511180 (Version 1)
Quarter: 2018Q1

REPORT INFORMATION
  Report Type: Report from Study
  Country: BR (occurrence: BR)
  Receive Date: 20180209
  Receipt Date: 20180209
  Transmission Date: 20180509
  Serious: Yes (Life-Threatening, Hospitalization, Other)
  Sender: FDA-Public Use
  Company Number: BR-MYLANLABS-2018M1008601

PATIENT
  Sex: Female

DRUGS (2)
  1. FOLINIC ACID [Suspect]
     Active Substance: LEUCOVORIN
     Indication: GESTATIONAL TROPHOBLASTIC TUMOUR
     Dosage: 0.1 MG/KG 24 HOURS AFTER EACH DOSE OF METHOTREXATE ON DAYS 2, 4, 6, 8 AS PART OF A 8 DAY CYCLE
     Route: 048
  2. METHOTREXATE. [Suspect]
     Active Substance: METHOTREXATE
     Indication: GESTATIONAL TROPHOBLASTIC TUMOUR
     Dosage: 1 MG/KG ON DAYS 1, 3, 5, 7 AS PART OF 8 DAY CYCLE
     Route: 030

REACTIONS (5)
  - Abdominal pain [Recovered/Resolved]
  - Pyelonephritis [Recovered/Resolved]
  - Peritonitis [Recovered/Resolved]
  - Neutropenia [Recovered/Resolved]
  - Urinary tract infection [Recovered/Resolved]
